FAERS Safety Report 6837986-1 (Version None)
Quarter: 2010Q3

REPORT INFORMATION
  Report Type: 
  Country: None (occurrence: None)
  Receive Date: 20100713
  Receipt Date: 20070501
  Transmission Date: 20110219
  Serious: No
  Sender: FDA-Public Use
  Company Number: US-PFIZER INC-2007035122

PATIENT
  Sex: Female
  Weight: 56.25 kg

DRUGS (9)
  1. CHANTIX [Suspect]
     Indication: SMOKING CESSATION THERAPY
     Dates: start: 20070430
  2. ALLEGRA [Concomitant]
  3. ADVAIR DISKUS 100/50 [Concomitant]
  4. DRUG, UNSPECIFIED [Concomitant]
  5. SALBUTAMOL [Concomitant]
     Route: 055
  6. MULTI-VITAMINS [Concomitant]
  7. OPHTHALMOLOGICALS [Concomitant]
  8. CELEXA [Concomitant]
  9. SPIRIVA [Concomitant]

REACTIONS (2)
  - HEADACHE [None]
  - INSOMNIA [None]
